FAERS Safety Report 5099876-7 (Version None)
Quarter: 2006Q3

REPORT INFORMATION
  Report Type: 
  Country: None (occurrence: None)
  Receive Date: 20060906
  Receipt Date: 20060906
  Transmission Date: 20061208
  Serious: Yes (Other)
  Sender: FDA-Public Use
  Company Number: None

PATIENT
  Age: 51 Year
  Sex: Female
  Weight: 131.5431 kg

DRUGS (1)
  1. LEVAQUIN [Suspect]
     Indication: SINUSITIS
     Dosage: 1 PILL   ONCE A DAY  PO
     Route: 048
     Dates: start: 20060424, end: 20060507

REACTIONS (6)
  - ARTHRALGIA [None]
  - MOBILITY DECREASED [None]
  - MUSCULOSKELETAL PAIN [None]
  - NIGHTMARE [None]
  - PRURITUS GENERALISED [None]
  - THINKING ABNORMAL [None]
